FAERS Safety Report 25121361 (Version 1)
Quarter: 2025Q1

REPORT INFORMATION
  Report Type: Report from Study
  Country: NL (occurrence: NL)
  Receive Date: 20250326
  Receipt Date: 20250326
  Transmission Date: 20250409
  Serious: Yes (Other)
  Sender: BIOVITRUM
  Company Number: NL-AstraZeneca-CH-00829753A

PATIENT
  Age: 32 Week
  Sex: Female
  Weight: 4.98 kg

DRUGS (1)
  1. SYNAGIS [Suspect]
     Active Substance: PALIVIZUMAB
     Indication: Product used for unknown indication
     Route: 030
     Dates: start: 20241126

REACTIONS (1)
  - Rib fracture [Recovered/Resolved]
